FAERS Safety Report 5755327-8 (Version None)
Quarter: 2008Q2

REPORT INFORMATION
  Report Type: 
  Country: None (occurrence: None)
  Receive Date: 20080529
  Receipt Date: 20080529
  Transmission Date: 20081010
  Serious: Yes (Life-Threatening, Hospitalization)
  Sender: FDA-Public Use
  Company Number: None

PATIENT
  Age: 61 Year
  Sex: Female
  Weight: 70.3075 kg

DRUGS (3)
  1. IMITREX [Suspect]
     Indication: MIGRAINE
     Dosage: 1 TABLET AS NEEDED PO
     Route: 048
     Dates: start: 20050425, end: 20080131
  2. METOPROLOL SUCCINATE EXTENDED RELEASE [Concomitant]
  3. LISINOPRIL [Concomitant]

REACTIONS (2)
  - MUSCULOSKELETAL STIFFNESS [None]
  - MYOCARDIAL INFARCTION [None]
